FAERS Safety Report 7289339-2 (Version None)
Quarter: 2011Q1

REPORT INFORMATION
  Report Type: 
  Country: None (occurrence: None)
  Receive Date: 20110211
  Receipt Date: 20110211
  Transmission Date: 20110831
  Serious: Yes (Other)
  Sender: FDA-Public Use
  Company Number: DE-PFIZER INC-2010144817

PATIENT
  Age: 68 Year
  Sex: Female
  Weight: 78 kg

DRUGS (2)
  1. DIOVANE [Concomitant]
     Indication: HYPERTENSION
     Dosage: 80 UNK, UNK
     Route: 048
     Dates: start: 20080801
  2. SORTIS [Suspect]
     Indication: HYPERCHOLESTEROLAEMIA
     Dosage: 10 MG, 1X/DAY
     Dates: start: 20100601, end: 20101101

REACTIONS (1)
  - OSTEONECROSIS [None]
